FAERS Safety Report 5310268-5 (Version None)
Quarter: 2007Q2

REPORT INFORMATION
  Report Type: 
  Country: None (occurrence: None)
  Receive Date: 20070427
  Receipt Date: 20070417
  Transmission Date: 20071010
  Serious: Yes (Other)
  Sender: FDA-Public Use
  Company Number: GB-SHR-GB-2007-013686

PATIENT
  Sex: Female

DRUGS (3)
  1. SOTALOL HYDROCHLORIDE [Suspect]
     Indication: ARRHYTHMIA
  2. PRAMIPEXOLE DIHYDROCHLORIDE [Concomitant]
  3. AMIODARONE HCL [Concomitant]
     Route: 048

REACTIONS (1)
  - HALLUCINATION [None]
